FAERS Safety Report 14438607 (Version 2)
Quarter: 2019Q2

REPORT INFORMATION
  Report Type: Spontaneous
  Country: US (occurrence: US)
  Receive Date: 20180125
  Receipt Date: 20190425
  Transmission Date: 20190711
  Serious: Yes (Other)
  Sender: FDA-Public Use
  Company Number: US-TEVA-2018-US-850266

PATIENT
  Age: 81 Year
  Sex: Male

DRUGS (3)
  1. ACITRETIN. [Suspect]
     Active Substance: ACITRETIN
     Indication: BASAL CELL CARCINOMA
     Route: 065
     Dates: end: 2016
  2. ACITRETIN. [Suspect]
     Active Substance: ACITRETIN
     Indication: BASAL CELL CARCINOMA
  3. ACITRETIN. [Suspect]
     Active Substance: ACITRETIN
     Indication: PROPHYLACTIC CHEMOTHERAPY

REACTIONS (2)
  - Impaired healing [Recovering/Resolving]
  - Skin ulcer [Recovering/Resolving]
